FAERS Safety Report 4326178-6 (Version None)
Quarter: 2004Q1

REPORT INFORMATION
  Report Type: 
  Country: None (occurrence: None)
  Receive Date: 20040324
  Receipt Date: 20040310
  Transmission Date: 20041129
  Serious: Yes (Hospitalization)
  Sender: FDA-Public Use
  Company Number: 04P-056-0251655-00

PATIENT
  Age: 61 Year
  Sex: Male

DRUGS (19)
  1. ERYTHROMYCIN ETHYLSUCCINATE [Suspect]
     Indication: PYELONEPHRITIS ACUTE
     Dosage: 100 MG, 3 IN 1 D, PER ORAL
     Route: 048
     Dates: start: 20031031, end: 20031209
  2. VANCOMYCIN [Suspect]
     Indication: PYELONEPHRITIS
     Dates: start: 20031031
  3. CEFTAZIDIME [Suspect]
     Indication: PYELONEPHRITIS
     Dates: start: 20031031
  4. TRIMEBUTINE MALEATE [Concomitant]
  5. DANTROLENE [Concomitant]
  6. HYDROXYZINE HYDROCHLORIDE [Concomitant]
  7. BENSERAZIDE [Concomitant]
  8. BACLOFEN [Concomitant]
  9. OMEPRAZOLE [Concomitant]
  10. POTASSIUM [Concomitant]
  11. ALMITRINE DIMESILATE [Concomitant]
  12. FUROSEMIDE [Concomitant]
  13. MACROGOL [Concomitant]
  14. HEPARIN [Concomitant]
  15. DOMPERIDONE [Concomitant]
  16. GAVISCON [Concomitant]
  17. CEFOTAXIME [Concomitant]
  18. GENTAMICIN [Concomitant]
  19. METOCLOPRAMIDE [Concomitant]

REACTIONS (9)
  - ABDOMINAL PAIN [None]
  - ANAEMIA [None]
  - BLOOD CULTURE POSITIVE [None]
  - DUODENITIS [None]
  - FLATULENCE [None]
  - GASTRITIS [None]
  - PANCYTOPENIA [None]
  - PYREXIA [None]
  - URINARY TRACT INFECTION [None]
